FAERS Safety Report 20567641 (Version 1)
Quarter: 2022Q1

REPORT INFORMATION
  Report Type: Spontaneous
  Country: DE (occurrence: DE)
  Receive Date: 20220308
  Receipt Date: 20220308
  Transmission Date: 20220424
  Serious: Yes (Other)
  Sender: FDA-Public Use
  Company Number: DE-002147023-PHNU2002DE01949

PATIENT
  Age: 67 Year
  Sex: Male

DRUGS (1)
  1. CLOZAPINE [Suspect]
     Active Substance: CLOZAPINE
     Indication: Schizophrenia
     Dosage: 500 MILLIGRAM, QD
     Route: 065
     Dates: start: 20020430, end: 20020608

REACTIONS (4)
  - Leukocytosis [Unknown]
  - Differential white blood cell count abnormal [Recovering/Resolving]
  - Hypertension [Recovered/Resolved]
  - Tachycardia [Recovered/Resolved]
